FAERS Safety Report 7241551-4 (Version None)
Quarter: 2011Q1

REPORT INFORMATION
  Report Type: 
  Country: None (occurrence: None)
  Receive Date: 20110119
  Receipt Date: 20110119
  Transmission Date: 20110831
  Serious: Yes (Hospitalization)
  Sender: FDA-Public Use
  Company Number: None

PATIENT
  Age: 60 Year
  Sex: Male
  Weight: 114.3065 kg

DRUGS (1)
  1. CVS ALCOHOL SWABS [Suspect]
     Indication: BLOOD INSULIN
     Dates: start: 20101120, end: 20110113

REACTIONS (3)
  - PRODUCT CONTAMINATION [None]
  - BLOOD CULTURE POSITIVE [None]
  - DEHYDRATION [None]
